FAERS Safety Report 6137073-4 (Version None)
Quarter: 2009Q1

REPORT INFORMATION
  Report Type: 
  Country: None (occurrence: None)
  Receive Date: 20090326
  Receipt Date: 20090326
  Transmission Date: 20090719
  Serious: Yes (Death, Life-Threatening, Hospitalization, Other)
  Sender: FDA-Public Use
  Company Number: None

PATIENT
  Age: 26 Year
  Sex: Female
  Weight: 52.1637 kg

DRUGS (2)
  1. ABACAVIR SULFATE/LAMIVUDINE [Suspect]
     Indication: HIV INFECTION
     Dosage: 600MG/300MGDAILY PO
     Route: 048
  2. NEVIRAPINE [Suspect]
     Dosage: 200MG BID PO
     Route: 048

REACTIONS (3)
  - DISEASE COMPLICATION [None]
  - PANCREATITIS [None]
  - TUBERCULOSIS [None]
